FAERS Safety Report 5536579-6 (Version None)
Quarter: 2007Q4

REPORT INFORMATION
  Report Type: 
  Country: None (occurrence: None)
  Receive Date: 20071206
  Receipt Date: 20070914
  Transmission Date: 20080405
  Serious: Yes (Hospitalization)
  Sender: FDA-Public Use
  Company Number: US-AMGEN-US243438

PATIENT
  Sex: Female

DRUGS (2)
  1. ENBREL [Suspect]
     Indication: RHEUMATOID ARTHRITIS
     Route: 058
     Dates: start: 20001001
  2. METHOTREXATE [Concomitant]
     Route: 048
     Dates: start: 20001001

REACTIONS (2)
  - CEREBROVASCULAR ACCIDENT [None]
  - CYSTITIS [None]
